FAERS Safety Report 5470126-2 (Version None)
Quarter: 2007Q3

REPORT INFORMATION
  Report Type: 
  Country: None (occurrence: None)
  Receive Date: 20070927
  Receipt Date: 20070917
  Transmission Date: 20080115
  Serious: Yes (Death, Hospitalization)
  Sender: FDA-Public Use
  Company Number: CH-PFIZER INC-2007077295

PATIENT
  Sex: Male

DRUGS (13)
  1. SORTIS [Suspect]
     Indication: HYPERCHOLESTEROLAEMIA
     Route: 048
  2. TRANXILIUM [Suspect]
     Route: 048
  3. MIDAZOLAM HCL [Suspect]
     Route: 048
  4. ZOLPIDEM TARTRATE [Suspect]
     Route: 048
  5. TEMESTA [Suspect]
     Route: 048
  6. PARACETAMOL [Concomitant]
     Route: 048
  7. NORVASC [Concomitant]
     Dosage: DAILY DOSE:10MG-FREQ:DAILY
     Route: 048
  8. METOPROLOL SUCCINATE [Concomitant]
     Dosage: DAILY DOSE:25MG-FREQ:DAILY
     Route: 048
  9. PLAVIX [Concomitant]
     Dosage: DAILY DOSE:75MG-FREQ:DAILY
     Route: 048
  10. TORSEMIDE [Concomitant]
     Dosage: DAILY DOSE:5MG-FREQ:DAILY
     Route: 048
  11. ELTROXIN [Concomitant]
     Dosage: DAILY DOSE:.25MG-FREQ:DAILY
     Route: 048
  12. AMISULPRIDE [Concomitant]
     Route: 048
  13. MAGNESIUM SULFATE [Concomitant]

REACTIONS (5)
  - HYPERGLYCAEMIA [None]
  - PNEUMONIA [None]
  - RENAL FAILURE ACUTE [None]
  - RESPIRATORY DEPRESSION [None]
  - RHABDOMYOLYSIS [None]
